FAERS Safety Report 23714918 (Version 2)
Quarter: 2024Q2

REPORT INFORMATION
  Report Type: Spontaneous
  Country: US (occurrence: None)
  Receive Date: 20240406
  Receipt Date: 20240604
  Transmission Date: 20240716
  Serious: No
  Sender: FDA-Public Use
  Company Number: 2024A077638

PATIENT
  Sex: Female

DRUGS (1)
  1. SYMBICORT [Suspect]
     Active Substance: BUDESONIDE\FORMOTEROL FUMARATE DIHYDRATE
     Dosage: 80UG, UNKNOWN UNKNOWN
     Route: 055

REACTIONS (5)
  - Memory impairment [Unknown]
  - Asthenia [Unknown]
  - Eye disorder [Unknown]
  - Product dose omission issue [Unknown]
  - Device issue [Unknown]
